FAERS Safety Report 16763510 (Version 5)
Quarter: 2021Q1

REPORT INFORMATION
  Report Type: Spontaneous
  Country: CA (occurrence: CA)
  Receive Date: 20190902
  Receipt Date: 20210311
  Transmission Date: 20210419
  Serious: Yes (Other)
  Sender: FDA-Public Use
  Company Number: CA-PFIZER INC-2019371465

PATIENT
  Sex: Male

DRUGS (10)
  1. QUETIAPINE FUMARATE. [Suspect]
     Active Substance: QUETIAPINE FUMARATE
     Dosage: UNK
     Route: 048
  2. CLONIDINE. [Suspect]
     Active Substance: CLONIDINE
     Dosage: UNK
  3. TOLTERODINE TARTRATE. [Suspect]
     Active Substance: TOLTERODINE TARTRATE
     Dosage: UNK
  4. PALIPERIDONE PALMITATE [Suspect]
     Active Substance: PALIPERIDONE PALMITATE
     Dosage: UNK
  5. JANUVIA [Suspect]
     Active Substance: SITAGLIPTIN PHOSPHATE
     Dosage: UNK
  6. RAMIPRIL. [Suspect]
     Active Substance: RAMIPRIL
     Dosage: UNK
     Route: 048
  7. TESTOSTERONE CIPIONATE [Suspect]
     Active Substance: TESTOSTERONE
     Dosage: UNK
  8. QUETIAPINE. [Suspect]
     Active Substance: QUETIAPINE
     Dosage: UNK
     Route: 048
  9. DOXEPIN [Suspect]
     Active Substance: DOXEPIN
     Dosage: UNK
  10. INVEGA SUSTENNA [Suspect]
     Active Substance: PALIPERIDONE PALMITATE
     Dosage: UNK

REACTIONS (6)
  - Constipation [Not Recovered/Not Resolved]
  - Seizure [Not Recovered/Not Resolved]
  - Dry mouth [Not Recovered/Not Resolved]
  - Hallucination [Not Recovered/Not Resolved]
  - Muscle twitching [Not Recovered/Not Resolved]
  - Diarrhoea [Not Recovered/Not Resolved]
